FAERS Safety Report 23161798 (Version 1)
Quarter: 2023Q4

REPORT INFORMATION
  Report Type: Spontaneous
  Country: RS (occurrence: RS)
  Receive Date: 20231108
  Receipt Date: 20231108
  Transmission Date: 20240110
  Serious: Yes (Other)
  Sender: FDA-Public Use
  Company Number: RS-AMGEN-SRBSP2023195132

PATIENT
  Age: 59 Year
  Sex: Male

DRUGS (5)
  1. VECTIBIX [Suspect]
     Active Substance: PANITUMUMAB
     Indication: Adenocarcinoma
     Dosage: UNK
     Route: 065
  2. LEUCOVORIN [Concomitant]
     Active Substance: LEUCOVORIN\LEUCOVORIN CALCIUM
     Route: 065
  3. FLUOROURACIL SODIUM [Concomitant]
     Active Substance: FLUOROURACIL SODIUM
     Dosage: UNK
     Route: 065
  4. IRINOTECAN [Concomitant]
     Active Substance: IRINOTECAN
     Dosage: UNK
     Route: 065
  5. OXALIPLATIN [Concomitant]
     Active Substance: OXALIPLATIN
     Dosage: UNK
     Route: 065

REACTIONS (5)
  - Hydronephrosis [Unknown]
  - Urosepsis [Unknown]
  - Skin toxicity [Unknown]
  - Haemangioma [Unknown]
  - Therapy partial responder [Unknown]
